FAERS Safety Report 12432943 (Version 3)
Quarter: 2016Q3

REPORT INFORMATION
  Report Type: Spontaneous
  Country: US (occurrence: US)
  Receive Date: 20160603
  Receipt Date: 20160720
  Transmission Date: 20161109
  Serious: Yes (Other)
  Sender: FDA-Public Use
  Company Number: PHEH2016US013630

PATIENT
  Age: 60 Year
  Sex: Male

DRUGS (5)
  1. GILENYA [Suspect]
     Active Substance: FINGOLIMOD HYDROCHLORIDE
     Indication: PRODUCT USED FOR UNKNOWN INDICATION
     Dosage: UNK, QOD
     Route: 065
     Dates: start: 20151204
  2. GABAPENTIN. [Suspect]
     Active Substance: GABAPENTIN
     Dosage: 900 MG, UNK
     Route: 065
  3. GILENYA [Suspect]
     Active Substance: FINGOLIMOD HYDROCHLORIDE
     Dosage: UNK, QOD
     Route: 065
  4. VITAMIN D [Concomitant]
     Active Substance: CHOLECALCIFEROL
     Indication: PRODUCT USED FOR UNKNOWN INDICATION
     Dosage: 10000 IU, QD
     Route: 065
  5. GABAPENTIN. [Suspect]
     Active Substance: GABAPENTIN
     Indication: PRODUCT USED FOR UNKNOWN INDICATION
     Dosage: 300 MG, BID (TOOK 600 MG AT BEDTIME)
     Route: 065

REACTIONS (27)
  - Decreased vibratory sense [Unknown]
  - Dizziness [Unknown]
  - Crohn^s disease [Unknown]
  - Vomiting [Unknown]
  - Hyperreflexia [Unknown]
  - Limb discomfort [Unknown]
  - Muscle tightness [Unknown]
  - Muscle spasms [Unknown]
  - Diarrhoea [Unknown]
  - Musculoskeletal stiffness [Unknown]
  - Aphasia [Unknown]
  - Decreased appetite [Unknown]
  - Hypotonia [Unknown]
  - Muscle spasticity [Unknown]
  - Pain [Unknown]
  - Feeling abnormal [Unknown]
  - Stress [Unknown]
  - Prescribed underdose [Unknown]
  - Drug intolerance [Unknown]
  - Abdominal discomfort [Unknown]
  - Grip strength decreased [Unknown]
  - Burning sensation [Unknown]
  - Fatigue [Unknown]
  - Headache [Unknown]
  - Nausea [Unknown]
  - Paraesthesia [Unknown]
  - Somnolence [Unknown]

NARRATIVE: CASE EVENT DATE: 20160428
